FAERS Safety Report 9797531 (Version 2)
Quarter: 2014Q1

REPORT INFORMATION
  Report Type: Report from Study
  Country: CA (occurrence: CA)
  Receive Date: 20140106
  Receipt Date: 20140106
  Transmission Date: 20141002
  Serious: Yes (Hospitalization)
  Sender: FDA-Public Use
  Company Number: PHHY2013CA153024

PATIENT
  Age: 80 Year
  Sex: Female

DRUGS (1)
  1. SANDOSTATIN LAR [Suspect]
     Indication: SUBILEUS
     Dosage: 20 MG, ONCE A MONTH
     Route: 030
     Dates: start: 20131206

REACTIONS (1)
  - Pulmonary oedema [Unknown]
